FAERS Safety Report 7002546-9 (Version None)
Quarter: 2010Q3

REPORT INFORMATION
  Report Type: 
  Country: None (occurrence: None)
  Receive Date: 20100920
  Receipt Date: 20100616
  Transmission Date: 20110219
  Serious: No
  Sender: FDA-Public Use
  Company Number: US-ASTRAZENECA-2010SE28245

PATIENT
  Age: 646 Month
  Sex: Male
  Weight: 99.8 kg

DRUGS (1)
  1. SEROQUEL [Suspect]
     Indication: BIPOLAR I DISORDER
     Route: 048
     Dates: start: 20100301

REACTIONS (5)
  - CONTUSION [None]
  - CRYING [None]
  - DIZZINESS [None]
  - FALL [None]
  - INSOMNIA [None]
